FAERS Safety Report 9578199 (Version 1)
Quarter: 2013Q4

REPORT INFORMATION
  Report Type: Spontaneous
  Country: US (occurrence: US)
  Receive Date: 20131001
  Receipt Date: 20131001
  Transmission Date: 20140711
  Serious: No
  Sender: FDA-Public Use
  Company Number: US-AMGEN-USASP2013011689

PATIENT
  Age: 63 Year
  Sex: Female
  Weight: 58.5 kg

DRUGS (9)
  1. ENBREL [Suspect]
     Indication: PRODUCT USED FOR UNKNOWN INDICATION
     Dosage: 50 MG, QWK
     Route: 058
  2. VIIBRYD [Concomitant]
     Dosage: UNK
  3. METHOTREXATE [Concomitant]
     Dosage: 2.5 MG, UNK
  4. FOLIC ACID [Concomitant]
     Dosage: 1 MG, UNK
  5. KLONOPIN [Concomitant]
     Dosage: 0.5 MG, UNK
  6. SYNTHROID [Concomitant]
     Dosage: 25 MUG, UNK
  7. CRESTOR [Concomitant]
     Dosage: 5 MG, UNK
  8. BIOTIN FORTE [Concomitant]
     Dosage: UNK
  9. WELLBUTRIN [Concomitant]
     Dosage: 100 MG, UNK

REACTIONS (5)
  - Pain [Unknown]
  - Condition aggravated [Unknown]
  - Mood altered [Unknown]
  - Nervousness [Unknown]
  - Alopecia [Unknown]
